FAERS Safety Report 17525464 (Version 1)
Quarter: 2020Q1

REPORT INFORMATION
  Report Type: Spontaneous
  Country: US (occurrence: US)
  Receive Date: 20200303
  Receipt Date: 20200303
  Transmission Date: 20200409
  Serious: Yes (Hospitalization)
  Sender: FDA-Public Use
  Company Number: None

PATIENT
  Age: 71 Year
  Sex: Male
  Weight: 56 kg

DRUGS (1)
  1. NORTRIPTYLINE (NORTRIPTYLINE HCL 10MG CAP) [Suspect]
     Active Substance: NORTRIPTYLINE HYDROCHLORIDE
     Indication: PAIN
     Dosage: ?          OTHER DOSE:1 UNITS;?
     Route: 048
     Dates: start: 20191121, end: 20191129

REACTIONS (5)
  - Vision blurred [None]
  - Aphasia [None]
  - Drug screen positive [None]
  - Hallucination [None]
  - Ataxia [None]

NARRATIVE: CASE EVENT DATE: 20191129
